FAERS Safety Report 5567391-X (Version None)
Quarter: 2007Q4

REPORT INFORMATION
  Report Type: 
  Country: None (occurrence: None)
  Receive Date: 20071214
  Receipt Date: 20071203
  Transmission Date: 20080405
  Serious: Yes (Life-Threatening, Other)
  Sender: FDA-Public Use
  Company Number: 6039697

PATIENT
  Age: 64 Year
  Sex: Male

DRUGS (17)
  1. BISOPROLOL FUMARATE [Suspect]
     Indication: DRUG USE FOR UNKNOWN INDICATION
     Dosage: 5 MG (5 MG, 1 IN 1 D)
  2. DORZOLAMIDE HCL TIMOLOL MALEATE [Suspect]
     Indication: DRUG USE FOR UNKNOWN INDICATION
  3. BUPIVACAINE [Suspect]
     Indication: ANAESTHESIA
     Dosage: 0,5% (5 ML, ONCE) 0,25 (5 ML, 1 IN 30 MIN)
  4. BUPIVACAINE [Suspect]
     Indication: COLECTOMY
     Dosage: 0,5% (5 ML, ONCE) 0,25 (5 ML, 1 IN 30 MIN)
  5. RAMIPRIL [Concomitant]
  6. SIMVASTATIN [Concomitant]
  7. TAMSULOSIN HCL [Concomitant]
  8. REPLAVITE (ASCORBIC ACID, PYRIDOXINE HYDROCHLORIDE, BIOTIN, FOLIC ACID [Concomitant]
  9. LATANOPROST [Concomitant]
  10. MIDAZOLAM HCL [Concomitant]
  11. LIDOCAINE [Concomitant]
  12. PROPOFOL [Concomitant]
  13. FENTANYL [Concomitant]
  14. ROCURONIUM (ROCURONIUM) [Concomitant]
  15. NITROUS OXIDE W/ OXYGEN [Concomitant]
  16. ISOFLURANE [Concomitant]
  17. PHENYLEPHRINE (PHENYLEPHRINE) [Concomitant]

REACTIONS (5)
  - BLOOD PRESSURE DIASTOLIC INCREASED [None]
  - CARDIAC ARREST [None]
  - HEART RATE INCREASED [None]
  - PROCEDURAL COMPLICATION [None]
  - SYNCOPE VASOVAGAL [None]
